FAERS Safety Report 24159228 (Version 1)
Quarter: 2024Q3

REPORT INFORMATION
  Report Type: Report from Study
  Country: AU (occurrence: AU)
  Receive Date: 20240731
  Receipt Date: 20240731
  Transmission Date: 20241016
  Serious: Yes (Hospitalization, Other)
  Sender: TEVA
  Company Number: AU-Pharmaand-2024000631

PATIENT
  Age: 74 Year
  Sex: Male

DRUGS (3)
  1. BENDAMUSTINE [Suspect]
     Active Substance: BENDAMUSTINE
     Indication: Diffuse large B-cell lymphoma refractory
     Route: 042
  2. TAFASITAMAB [Suspect]
     Active Substance: TAFASITAMAB
     Indication: Diffuse large B-cell lymphoma refractory
     Route: 042
     Dates: start: 20240226
  3. TAFASITAMAB [Suspect]
     Active Substance: TAFASITAMAB
     Indication: Diffuse large B-cell lymphoma refractory
     Route: 042
     Dates: start: 20180109, end: 20240130

REACTIONS (3)
  - Squamous cell carcinoma of skin [Recovered/Resolved]
  - Off label use [Unknown]
  - Diffuse large B-cell lymphoma refractory [Recovered/Resolved]

NARRATIVE: CASE EVENT DATE: 20240116
